FAERS Safety Report 21436224 (Version 1)
Quarter: 2022Q4

REPORT INFORMATION
  Report Type: Other
  Country: US (occurrence: None)
  Receive Date: 20221010
  Receipt Date: 20221010
  Transmission Date: 20230113
  Serious: Yes (Other)
  Sender: FDA-Public Use
  Company Number: US-ROCHE-3194154

PATIENT
  Age: 64 Year
  Sex: Female

DRUGS (1)
  1. XELODA [Suspect]
     Active Substance: CAPECITABINE
     Indication: Colon cancer
     Dosage: TAKE 3 TABLETS BY MOUTH TWICE A DAY 2 WEEKS ON, 1 WEEK OFF
     Route: 048

REACTIONS (2)
  - Neoplasm malignant [Unknown]
  - Product dose omission issue [Unknown]
